FAERS Safety Report 7627474-7 (Version None)
Quarter: 2011Q3

REPORT INFORMATION
  Report Type: 
  Country: None (occurrence: None)
  Receive Date: 20110721
  Receipt Date: 20110711
  Transmission Date: 20111222
  Serious: Yes (Hospitalization, Other)
  Sender: FDA-Public Use
  Company Number: US-ELI_LILLY_AND_COMPANY-US201005000150

PATIENT
  Sex: Female
  Weight: 113.38 kg

DRUGS (13)
  1. BYETTA [Suspect]
     Dosage: 10 UG, BID
     Route: 058
  2. LASIX [Concomitant]
  3. METFORMIN HYDROCHLORIDE [Concomitant]
     Dosage: 500 MG, BID
     Route: 048
  4. CEPHALEXIN [Concomitant]
  5. AMITRIPTYLINE HCL [Concomitant]
  6. MELOXICAM [Concomitant]
  7. DETROL LA [Concomitant]
  8. LISINOPRIL [Concomitant]
  9. BYETTA [Suspect]
     Indication: TYPE 2 DIABETES MELLITUS
     Dosage: 5 UG, 2/D
     Route: 058
     Dates: start: 20050101
  10. OXYCODONE HCL AND ACETAMINOPHEN [Concomitant]
  11. BYETTA [Suspect]
     Dosage: 10 UG, 2/D
  12. CYMBALTA [Concomitant]
  13. FENOFIBRATE [Concomitant]

REACTIONS (13)
  - INSOMNIA [None]
  - FALL [None]
  - RENAL DISORDER [None]
  - INJECTION SITE HAEMORRHAGE [None]
  - CHILLS [None]
  - SOMNOLENCE [None]
  - RENAL FAILURE [None]
  - BLADDER OPERATION [None]
  - BLOOD GLUCOSE INCREASED [None]
  - ARTHRITIS [None]
  - ARTHRALGIA [None]
  - SENSORY LOSS [None]
  - TREMOR [None]
